FAERS Safety Report 12519275 (Version 2)
Quarter: 2016Q3

REPORT INFORMATION
  Report Type: Spontaneous
  Country: JP (occurrence: JP)
  Receive Date: 20160630
  Receipt Date: 20160715
  Transmission Date: 20161109
  Serious: Yes (Death, Hospitalization, Other)
  Sender: FDA-Public Use
  Company Number: JP-009507513-1606JPN005155

PATIENT
  Age: 85 Year
  Sex: Female
  Weight: 60 kg

DRUGS (28)
  1. SODIUM CHLORIDE. [Concomitant]
     Active Substance: SODIUM CHLORIDE
     Dosage: 100 ML, QD (DIVIDED DOSE FREQUENCY UNKNOWN)
     Route: 051
  2. SODIUM CHLORIDE. [Concomitant]
     Active Substance: SODIUM CHLORIDE
     Dosage: 100 ML, QD (DIVIDED DOSE FREQUENCY UNKNOWN)
     Route: 051
  3. RECOMODULIN [Concomitant]
     Active Substance: THROMBOMODULIN ALFA
     Dosage: 1 DF, QD (DIVIDED DOSE FREQUENCY UNKNOWN)
     Route: 041
     Dates: start: 20160606, end: 20160606
  4. POTASSIUM ASPARTATE [Concomitant]
     Active Substance: POTASSIUM ASPARTATE
     Dosage: 10 ML, QD (DIVIDED DOSE FREQUENCY UNKNOWN)
     Route: 051
  5. SODIUM CHLORIDE. [Concomitant]
     Active Substance: SODIUM CHLORIDE
     Dosage: 100 ML, QD (DIVIDED DOSE FREQUENCY UNKNOWN)
     Route: 051
  6. SODIUM CHLORIDE. [Concomitant]
     Active Substance: SODIUM CHLORIDE
     Dosage: 43.5 ML, QD (DIVIDED DOSE FREQUENCY UNKNOWN)
     Route: 051
  7. PARIET [Concomitant]
     Active Substance: RABEPRAZOLE SODIUM
     Dosage: 10 MG, QD
     Route: 048
  8. FERROMIA [Concomitant]
     Active Substance: FERROUS CITRATE
     Dosage: 50 MG, QD
     Route: 048
  9. FESIN [Concomitant]
     Active Substance: IRON SUCROSE
     Indication: ANAEMIA
     Dosage: 40 MG, QD
     Route: 041
     Dates: start: 20160528, end: 20160601
  10. CUBICIN [Suspect]
     Active Substance: DAPTOMYCIN
     Indication: SEPSIS
     Dosage: 350 MG, QD (DIVIDED DOSE FREQUENCY UNKNOWN)
     Route: 041
     Dates: start: 20160604, end: 20160607
  11. OMEPRAL [Concomitant]
     Active Substance: OMEPRAZOLE
     Dosage: 1 DF, QD (DIVIDED DOSE FREQUENCY UNKNOWN)
     Route: 041
  12. SODIUM CHLORIDE. [Concomitant]
     Active Substance: SODIUM CHLORIDE
     Dosage: 20 ML, QD (DIVIDED DOSE FREQUENCY UNKNOWN)
     Route: 041
     Dates: end: 20160608
  13. RECOMODULIN [Concomitant]
     Active Substance: THROMBOMODULIN ALFA
     Dosage: 1 DF, QD (DIVIDED DOSE FREQUENCY UNKNOWN)
     Route: 041
     Dates: end: 20160605
  14. DEXTROSE. [Concomitant]
     Active Substance: DEXTROSE
     Dosage: 40 ML, QD (DIVIDED DOSE FREQUENCY UNKNOWN)
     Route: 051
  15. HEPARIN SODIUM. [Concomitant]
     Active Substance: HEPARIN SODIUM
     Indication: DISSEMINATED INTRAVASCULAR COAGULATION
     Dosage: 10 (UNDER1000UNIT), QD
     Route: 041
     Dates: start: 20160525, end: 20160603
  16. GLOVENIN [Concomitant]
     Indication: SEPSIS
     Dosage: 2.5 G, QD
     Route: 041
     Dates: start: 20160525, end: 20160527
  17. LASIX [Concomitant]
     Active Substance: FUROSEMIDE
     Dosage: 20 MG, QD (DIVIDED DOSE FREQUENCY UNKNOWN)
     Route: 041
     Dates: start: 20160605, end: 20160605
  18. MAINTATE [Concomitant]
     Active Substance: BISOPROLOL FUMARATE
     Dosage: 0.625 MG, QD
     Route: 048
  19. ZYVOX [Concomitant]
     Active Substance: LINEZOLID
     Indication: SEPSIS
     Dosage: 600 MG, QD
     Route: 041
     Dates: start: 20160527, end: 20160603
  20. CATACLOT [Concomitant]
     Indication: CEREBRAL INFARCTION
     Dosage: 80 MG, BID
     Route: 041
     Dates: start: 20160525, end: 20160603
  21. LASIX [Concomitant]
     Active Substance: FUROSEMIDE
     Dosage: 20 MG, QD (DIVIDED DOSE FREQUENCY UNKNOWN)
     Route: 041
     Dates: end: 20160604
  22. LASIX [Concomitant]
     Active Substance: FUROSEMIDE
     Dosage: 20 MG, QD (DIVIDED DOSE FREQUENCY UNKNOWN)
     Route: 041
     Dates: start: 20160606, end: 20160606
  23. BAYASPIRIN [Concomitant]
     Active Substance: ASPIRIN
     Dosage: 100 MG, QD
     Route: 048
  24. CRESTOR [Concomitant]
     Active Substance: ROSUVASTATIN CALCIUM
     Dosage: 2.5 MG, QD
     Route: 048
  25. MEROPENEM. [Concomitant]
     Active Substance: MEROPENEM
     Dosage: 0.5 G, QD (DIVIDED DOSE FREQUENCY UNKNOWN)
     Route: 041
     Dates: end: 20160608
  26. SODIUM CHLORIDE. [Concomitant]
     Active Substance: SODIUM CHLORIDE
     Dosage: 50 ML, QD (DIVIDED DOSE FREQUENCY UNKNOWN)
     Route: 051
  27. SODIUM CHLORIDE. [Concomitant]
     Active Substance: SODIUM CHLORIDE
     Dosage: 500 ML, QD (DIVIDED DOSE FREQUENCY UNKNOWN)
     Route: 041
  28. FRAGMIN [Concomitant]
     Active Substance: DALTEPARIN SODIUM
     Dosage: 4.5 (THOUSAND MILLION UNIT)(DIVIDED DOSE FREQUENCY UNKNOWN)
     Route: 041

REACTIONS (3)
  - Pyrexia [Unknown]
  - Blood creatine phosphokinase increased [Unknown]
  - Retroperitoneal haemorrhage [Fatal]

NARRATIVE: CASE EVENT DATE: 201606
